FAERS Safety Report 4884646-2 (Version None)
Quarter: 2005Q4

REPORT INFORMATION
  Report Type: 
  Country: None (occurrence: None)
  Receive Date: 20051201
  Receipt Date: 20050913
  Transmission Date: 20060501
  Serious: No
  Sender: FDA-Public Use
  Company Number: 2005PV002044

PATIENT
  Age: 57 Year
  Sex: Male
  Weight: 106.5953 kg

DRUGS (9)
  1. BYETTA [Suspect]
     Indication: DIABETES MELLITUS NON-INSULIN-DEPENDENT
     Dosage: 5 MCG; BID; SC
     Route: 058
     Dates: start: 20050912, end: 20050912
  2. ACTOS [Concomitant]
  3. DIOVAN HCT [Concomitant]
  4. THYROID TAB [Concomitant]
  5. CRESTOR [Concomitant]
  6. MULTIVITAMIN [Concomitant]
  7. GLUCOSOMINE [Concomitant]
  8. ASPIRIN [Concomitant]
  9. INHALER [Concomitant]

REACTIONS (11)
  - ABDOMINAL DISTENSION [None]
  - DIZZINESS [None]
  - DYSPEPSIA [None]
  - INFLUENZA LIKE ILLNESS [None]
  - INJECTION SITE PAIN [None]
  - NAUSEA [None]
  - NIGHT SWEATS [None]
  - PRURITUS [None]
  - RHINORRHOEA [None]
  - STOMACH DISCOMFORT [None]
  - THROAT IRRITATION [None]
